FAERS Safety Report 19762630 (Version 1)
Quarter: 2021Q3

REPORT INFORMATION
  Report Type: Spontaneous
  Country: US (occurrence: US)
  Receive Date: 20210827
  Receipt Date: 20210827
  Transmission Date: 20211014
  Serious: Yes (Death, Other)
  Sender: FDA-Public Use
  Company Number: US-GILEAD-2021-0545973

PATIENT
  Age: 60 Year
  Sex: Female

DRUGS (1)
  1. TRODELVY [Suspect]
     Active Substance: SACITUZUMAB GOVITECAN-HZIY
     Indication: BREAST CANCER METASTATIC
     Dosage: 707 MG C1D1
     Route: 042
     Dates: start: 20210203, end: 20210203

REACTIONS (1)
  - Death [Fatal]

NARRATIVE: CASE EVENT DATE: 20210324
